FAERS Safety Report 23359270 (Version 1)
Quarter: 2024Q1

REPORT INFORMATION
  Report Type: Spontaneous
  Country: RU (occurrence: RU)
  Receive Date: 20240102
  Receipt Date: 20240102
  Transmission Date: 20240410
  Serious: Yes (Death)
  Sender: FDA-Public Use
  Company Number: RU-JNJFOC-20231280642

PATIENT
  Age: 62 Year
  Sex: Male
  Weight: 82 kg

DRUGS (8)
  1. SIRTURO [Suspect]
     Active Substance: BEDAQUILINE FUMARATE
     Indication: Tuberculosis
     Route: 048
     Dates: start: 20220122, end: 20220204
  2. SIRTURO [Suspect]
     Active Substance: BEDAQUILINE FUMARATE
     Route: 048
     Dates: start: 20220207, end: 20221030
  3. LEVOFLOXACIN [Suspect]
     Active Substance: LEVOFLOXACIN
     Indication: Tuberculosis
     Route: 048
     Dates: start: 20220122, end: 20221030
  4. LINEZOLID [Suspect]
     Active Substance: LINEZOLID
     Indication: Tuberculosis
     Route: 048
     Dates: start: 20220122, end: 20221030
  5. CLOFAZIMINE [Suspect]
     Active Substance: CLOFAZIMINE
     Indication: Tuberculosis
     Route: 048
     Dates: start: 20220122, end: 20221030
  6. BENFOTIAMINE\CYANOCOBALAMIN [Concomitant]
     Active Substance: BENFOTIAMINE\CYANOCOBALAMIN
     Indication: Prophylaxis
     Route: 048
     Dates: start: 20220122, end: 20221030
  7. GLYCINE [Concomitant]
     Active Substance: GLYCINE
     Indication: Cognitive disorder
     Dosage: 2 TABLETS
     Route: 048
     Dates: start: 20220122, end: 20221030
  8. PHOSPHOGLIV [GLYCYRRHIZIC ACID] [Concomitant]
     Indication: Prophylaxis
     Dosage: 1 CAPSULE TWICE A DAY PO
     Route: 048
     Dates: start: 20220122, end: 20221030

REACTIONS (1)
  - Lung cancer metastatic [Fatal]

NARRATIVE: CASE EVENT DATE: 20230307
